FAERS Safety Report 12974078 (Version 2)
Quarter: 2016Q4

REPORT INFORMATION
  Report Type: Spontaneous
  Country: US (occurrence: US)
  Receive Date: 20161124
  Receipt Date: 20161214
  Transmission Date: 20170207
  Serious: Yes (Death, Hospitalization, Other)
  Sender: FDA-Public Use
  Company Number: US-ROCHE-1858881

PATIENT
  Sex: Male

DRUGS (2)
  1. ESBRIET [Suspect]
     Active Substance: PIRFENIDONE
     Indication: IDIOPATHIC PULMONARY FIBROSIS
     Dosage: 1  267MG CAPSULE 3 TIMES A DAY ;ONGOING: YES
     Route: 048
     Dates: start: 20161120
  2. ESBRIET [Suspect]
     Active Substance: PIRFENIDONE
     Indication: CHRONIC SPONTANEOUS URTICARIA
     Dosage: 3-267MG CAPSULES 3 TIMES A DAY ORALLY ;ONGOING: NO
     Route: 048
     Dates: start: 201609, end: 20161109

REACTIONS (6)
  - Jaundice [Recovered/Resolved]
  - Blood bilirubin increased [Recovered/Resolved]
  - Abdominal pain upper [Recovered/Resolved]
  - Presyncope [Recovered/Resolved]
  - Chromaturia [Not Recovered/Not Resolved]
  - Cardiac arrest [Fatal]

NARRATIVE: CASE EVENT DATE: 201611
